FAERS Safety Report 4981729-3 (Version None)
Quarter: 2006Q2

REPORT INFORMATION
  Report Type: 
  Country: None (occurrence: None)
  Receive Date: 20060420
  Receipt Date: 20060420
  Transmission Date: 20061013
  Serious: Yes (Hospitalization)
  Sender: FDA-Public Use
  Company Number: None

PATIENT
  Age: 84 Year
  Sex: Female
  Weight: 50.8 kg

DRUGS (7)
  1. WARFARIN SODIUM [Suspect]
     Indication: ATRIAL FIBRILLATION
     Dosage: 4MG DAILY   CHRONIC
  2. ZOCOR [Concomitant]
  3. MVT [Concomitant]
  4. MICARDIS [Concomitant]
  5. AMITRIP [Concomitant]
  6. SENOKOT [Concomitant]
  7. REGLAN [Concomitant]

REACTIONS (6)
  - ACQUIRED OESOPHAGEAL WEB [None]
  - HAEMATEMESIS [None]
  - HYPOTENSION [None]
  - OESOPHAGEAL DISORDER [None]
  - OESOPHAGEAL ULCER [None]
  - THROMBOSIS [None]
